FAERS Safety Report 25582976 (Version 2)
Quarter: 2025Q3

REPORT INFORMATION
  Report Type: Spontaneous
  Country: US (occurrence: US)
  Receive Date: 20250721
  Receipt Date: 20250725
  Transmission Date: 20251021
  Serious: No
  Sender: AMGEN
  Company Number: US-AMGEN-USASP2025141064

PATIENT
  Age: 60 Year
  Sex: Female

DRUGS (15)
  1. AIMOVIG [Suspect]
     Active Substance: ERENUMAB-AOOE
     Indication: Migraine
     Dosage: 70 MILLIGRAM, QMO
     Route: 058
     Dates: start: 2020
  2. AIMOVIG [Suspect]
     Active Substance: ERENUMAB-AOOE
     Dosage: 70 MILLIGRAM, Q2WK
     Route: 058
     Dates: start: 2020
  3. AIMOVIG [Suspect]
     Active Substance: ERENUMAB-AOOE
     Dosage: 140 MILLIGRAM, QMO
     Route: 058
  4. AIMOVIG [Suspect]
     Active Substance: ERENUMAB-AOOE
     Dosage: 140 MILLIGRAM, QMO
     Route: 058
     Dates: start: 2021
  5. PROLIA [Suspect]
     Active Substance: DENOSUMAB
     Indication: Osteoporosis postmenopausal
     Route: 065
  6. GABAPENTIN [Concomitant]
     Active Substance: GABAPENTIN
     Indication: Migraine
  7. GABAPENTIN [Concomitant]
     Active Substance: GABAPENTIN
     Indication: Product used for unknown indication
  8. IRBESARTAN [Concomitant]
     Active Substance: IRBESARTAN
     Indication: Blood pressure abnormal
  9. IRBESARTAN [Concomitant]
     Active Substance: IRBESARTAN
     Indication: Product used for unknown indication
  10. METIPRANOLOL [Concomitant]
     Active Substance: METIPRANOLOL
     Indication: Blood pressure measurement
  11. METIPRANOLOL [Concomitant]
     Active Substance: METIPRANOLOL
     Indication: Product used for unknown indication
  12. PANTOPRAZOLE [Concomitant]
     Active Substance: PANTOPRAZOLE
     Indication: Hiatus hernia
  13. PANTOPRAZOLE [Concomitant]
     Active Substance: PANTOPRAZOLE
     Indication: Product used for unknown indication
  14. VITAMIN D [Concomitant]
     Active Substance: VITAMIN D NOS
  15. CALCIUM [Concomitant]
     Active Substance: CALCIUM

REACTIONS (9)
  - Drug ineffective [Unknown]
  - Abdominal pain [Recovered/Resolved]
  - Constipation [Recovered/Resolved]
  - Alopecia [Not Recovered/Not Resolved]
  - Tinnitus [Unknown]
  - Abdominal discomfort [Unknown]
  - Device difficult to use [Unknown]
  - Accidental exposure to product [Unknown]
  - Device use error [Unknown]

NARRATIVE: CASE EVENT DATE: 20250101
